FAERS Safety Report 13462583 (Version 1)
Quarter: 2017Q2

REPORT INFORMATION
  Report Type: Spontaneous
  Country: CN (occurrence: CN)
  Receive Date: 20170420
  Receipt Date: 20170420
  Transmission Date: 20170830
  Serious: Yes (Hospitalization)
  Sender: FDA-Public Use
  Company Number: CN-009507513-1704CHN006720

PATIENT
  Age: 65 Year
  Weight: 55 kg

DRUGS (3)
  1. TIENAM [Suspect]
     Active Substance: CILASTATIN SODIUM\IMIPENEM
     Indication: INFECTION
     Dosage: 500 MG, TID
     Route: 041
     Dates: start: 20161008, end: 20161014
  2. KAI SHUN [Suspect]
     Active Substance: AMBROXOL HYDROCHLORIDE
     Indication: SPUTUM ABNORMAL
     Dosage: 30 MG, BID
     Route: 041
     Dates: start: 20161008, end: 20161014
  3. THYMOPENTIN [Suspect]
     Active Substance: THYMOPENTIN
     Indication: IMMUNISATION
     Dosage: 10 MG, QD
     Route: 030
     Dates: start: 20161008, end: 20161014

REACTIONS (1)
  - Henoch-Schonlein purpura [Recovered/Resolved]

NARRATIVE: CASE EVENT DATE: 20161013
